FAERS Safety Report 8894242 (Version 1)
Quarter: 2012Q4

REPORT INFORMATION
  Report Type: 
  Country: US (occurrence: US)
  Receive Date: 20121107
  Receipt Date: 20121107
  Transmission Date: 20130627
  Serious: No
  Sender: FDA-Public Use
  Company Number: US-AMGEN-USASP2011058335

PATIENT
  Age: 52 Year
  Sex: Female
  Weight: 61.22 kg

DRUGS (6)
  1. ENBREL [Suspect]
     Indication: PRODUCT USED FOR UNKNOWN INDICATION
     Dosage: 50 mg, qwk
     Route: 058
  2. METHOTREXATE [Concomitant]
     Dosage: 2.5 mg, UNK
  3. ORTHO-NOVUM                        /00013701/ [Concomitant]
     Dosage: UNK
  4. CLOBETASOL 0.05% [Concomitant]
     Dosage: UNK
  5. FOLIC ACID [Concomitant]
     Dosage: 1 mg, UNK
  6. MULTIVITAMINS WITH IRON            /01824901/ [Concomitant]
     Dosage: UNK

REACTIONS (1)
  - Injection site erythema [Unknown]
